FAERS Safety Report 16467173 (Version 2)
Quarter: 2019Q3

REPORT INFORMATION
  Report Type: Spontaneous
  Country: US (occurrence: US)
  Receive Date: 20190624
  Receipt Date: 20190731
  Transmission Date: 20191004
  Serious: No
  Sender: FDA-Public Use
  Company Number: US-TEVA-2019-US-1060750

PATIENT
  Sex: Female

DRUGS (1)
  1. CLONAZEPAM ACTAVIS [Suspect]
     Active Substance: CLONAZEPAM
     Indication: OESOPHAGEAL SPASM
     Dosage: DOSE STRENGTH:  0.5 MG
     Dates: start: 2018

REACTIONS (5)
  - Poor quality sleep [Unknown]
  - Tremor [Unknown]
  - Palpitations [Unknown]
  - Drug ineffective [Unknown]
  - Product use in unapproved indication [Unknown]
